FAERS Safety Report 11012654 (Version 2)
Quarter: 2015Q2

REPORT INFORMATION
  Report Type: Spontaneous
  Country: US (occurrence: None)
  Receive Date: 20150409
  Receipt Date: 20150501
  Transmission Date: 20150821
  Serious: Yes (Other)
  Sender: FDA-Public Use
  Company Number: 2015NUEUSA00474

PATIENT
  Age: 88 Year
  Sex: Female
  Weight: 53.1 kg

DRUGS (13)
  1. KEPPRA [Concomitant]
     Active Substance: LEVETIRACETAM
  2. CLONIDINE (CLONIDINE HYDROCHLORIDE) [Concomitant]
  3. SIMVASTATIN. [Concomitant]
     Active Substance: SIMVASTATIN
  4. VITAMIN C [Concomitant]
     Active Substance: ASCORBIC ACID
  5. NOVOLOG [Concomitant]
     Active Substance: INSULIN ASPART
  6. CIPROFLOXACIN (CIPROFLOXACIN HYDROCHLORIDE) [Concomitant]
  7. NUEDEXTA [Suspect]
     Active Substance: DEXTROMETHORPHAN HYDROBROMIDE\QUINIDINE SULFATE
     Indication: AFFECT LABILITY
     Dosage: 1 CAP
     Dates: start: 20150329, end: 201503
  8. LANTUS [Concomitant]
     Active Substance: INSULIN GLARGINE
  9. FERROUS SULFATE [Concomitant]
     Active Substance: FERROUS SULFATE\FERROUS SULFATE, DRIED
  10. METFORMIN [Concomitant]
     Active Substance: METFORMIN HYDROCHLORIDE
  11. MEGACE [Concomitant]
     Active Substance: MEGESTROL ACETATE
  12. BACTRIM [Concomitant]
     Active Substance: SULFAMETHOXAZOLE\TRIMETHOPRIM
  13. ROCEPHIN [Concomitant]
     Active Substance: CEFTRIAXONE SODIUM

REACTIONS (6)
  - Hallucination [None]
  - Abnormal behaviour [None]
  - Altered state of consciousness [None]
  - Vomiting [None]
  - Diarrhoea [None]
  - Aggression [None]

NARRATIVE: CASE EVENT DATE: 201503
